FAERS Safety Report 14033010 (Version 3)
Quarter: 2018Q2

REPORT INFORMATION
  Report Type: Spontaneous
  Country: JP (occurrence: JP)
  Receive Date: 20171002
  Receipt Date: 20180509
  Transmission Date: 20180711
  Serious: Yes (Hospitalization)
  Sender: FDA-Public Use
  Company Number: PHJP2017JP025460

PATIENT
  Age: 72 Year
  Sex: Female

DRUGS (3)
  1. METHOTREXATE. [Concomitant]
     Active Substance: METHOTREXATE
     Indication: PSORIATIC ARTHROPATHY
     Dosage: UNK
     Route: 065
  2. COSENTYX [Suspect]
     Active Substance: SECUKINUMAB
     Indication: PSORIATIC ARTHROPATHY
     Dosage: UNK
     Route: 058
     Dates: start: 201706
  3. PREDNISOLONE. [Concomitant]
     Active Substance: PREDNISOLONE
     Indication: PSORIATIC ARTHROPATHY
     Dosage: UNK
     Route: 065

REACTIONS (11)
  - Arthritis bacterial [Recovering/Resolving]
  - Imaging procedure abnormal [Recovering/Resolving]
  - Pyrexia [Unknown]
  - Drug effect incomplete [Unknown]
  - Pubic pain [Recovering/Resolving]
  - Subcutaneous abscess [Unknown]
  - Inflammation [Unknown]
  - Osteitis [Recovering/Resolving]
  - C-reactive protein increased [Unknown]
  - Abdominal pain lower [Unknown]
  - Osteomyelitis [Unknown]
